FAERS Safety Report 12566723 (Version 1)
Quarter: 2016Q3

REPORT INFORMATION
  Report Type: Spontaneous
  Country: AT (occurrence: AT)
  Receive Date: 20160718
  Receipt Date: 20160718
  Transmission Date: 20161109
  Serious: Yes (Hospitalization)
  Sender: FDA-Public Use
  Company Number: AT-BAYER-2016-139648

PATIENT
  Age: 14 Year
  Sex: Male

DRUGS (1)
  1. GADOVIST [Suspect]
     Active Substance: GADOBUTROL
     Indication: COMPUTERISED TOMOGRAM
     Dosage: 8 ML, ONCE
     Dates: start: 20160610, end: 20160610

REACTIONS (4)
  - Rash generalised [Unknown]
  - Swelling face [Unknown]
  - Urticaria [Unknown]
  - Restlessness [Unknown]

NARRATIVE: CASE EVENT DATE: 20160610
